FAERS Safety Report 5413316-7 (Version None)
Quarter: 2007Q3

REPORT INFORMATION
  Report Type: 
  Country: None (occurrence: None)
  Receive Date: 20070814
  Receipt Date: 20070803
  Transmission Date: 20080115
  Serious: Yes (Other)
  Sender: FDA-Public Use
  Company Number: JP-NOVOPROD-264356

PATIENT
  Sex: Female
  Weight: 41 kg

DRUGS (3)
  1. NOVOLOG MIX 70/30 [Suspect]
     Indication: INSULIN-REQUIRING TYPE II DIABETES MELLITUS
     Dosage: 12 IU, QD
     Route: 058
     Dates: start: 20061213
  2. GLUFAST [Concomitant]
     Dosage: 10 MG, QD
     Route: 048
     Dates: start: 20070404
  3. LIPITOR [Concomitant]
     Dosage: 5 MG, QD
     Route: 048
     Dates: start: 20060327

REACTIONS (1)
  - ULNA FRACTURE [None]
